FAERS Safety Report 5706590-0 (Version None)
Quarter: 2008Q2

REPORT INFORMATION
  Report Type: 
  Country: None (occurrence: None)
  Receive Date: 20080414
  Receipt Date: 20061017
  Transmission Date: 20081010
  Serious: Yes (Other)
  Sender: FDA-Public Use
  Company Number: 2006VX001957

PATIENT
  Age: 65 Year
  Sex: Male

DRUGS (8)
  1. AMITRIPTYLINE HCL [Suspect]
     Dosage: 25.00 MG;
  2. POTASSIUM CHLORIDE [Concomitant]
  3. PERCOCET [Concomitant]
  4. ZANTAC [Concomitant]
  5. BECLOMETHASONE DIPROPIONATE [Concomitant]
  6. DIPROPIONATE [Concomitant]
  7. ALBUTEROL [Concomitant]
  8. THEOPHYLLINE [Concomitant]

REACTIONS (2)
  - HALLUCINATION [None]
  - SOMNAMBULISM [None]
